FAERS Safety Report 9663969 (Version 1)
Quarter: 2013Q4

REPORT INFORMATION
  Report Type: Spontaneous
  Country: US (occurrence: None)
  Receive Date: 20131030
  Receipt Date: 20131030
  Transmission Date: 20140711
  Serious: Yes (Other)
  Sender: FDA-Public Use
  Company Number: None

PATIENT
  Age: 75 Year
  Sex: Female
  Weight: 101.15 kg

DRUGS (5)
  1. XARELTO [Suspect]
     Indication: THROMBOSIS
     Route: 048
     Dates: start: 20130518, end: 20130723
  2. BENAZEPRIL [Concomitant]
  3. NEXIUM [Concomitant]
  4. AMBIEN [Concomitant]
  5. TYLENOL P.M. [Concomitant]

REACTIONS (3)
  - Alopecia [None]
  - Pain of skin [None]
  - Hair colour changes [None]
